FAERS Safety Report 8729609 (Version 2)
Quarter: 2015Q2

REPORT INFORMATION
  Report Type: Report from Study
  Country: US (occurrence: US)
  Receive Date: 20120912
  Receipt Date: 20150406
  Transmission Date: 20150821
  Serious: Yes (Other)
  Sender: FDA-Public Use
  Company Number: US-ROCHE-1101446

PATIENT
  Age: 50 Year
  Sex: Female

DRUGS (4)
  1. ACTIVASE [Suspect]
     Active Substance: ALTEPLASE
     Indication: ACUTE MYOCARDIAL INFARCTION
     Route: 065
  2. VALIUM [Concomitant]
     Active Substance: DIAZEPAM
  3. HEPARIN [Concomitant]
     Active Substance: HEPARIN SODIUM
  4. NITROGLYCERINE [Concomitant]
     Active Substance: NITROGLYCERIN

REACTIONS (5)
  - Muscle spasms [Recovering/Resolving]
  - Fatigue [Recovering/Resolving]
  - Hypertension [Unknown]
  - Nausea [Recovering/Resolving]
  - Abdominal tenderness [Unknown]

NARRATIVE: CASE EVENT DATE: 19950303
